FAERS Safety Report 7234832-1 (Version None)
Quarter: 2011Q1

REPORT INFORMATION
  Report Type: 
  Country: None (occurrence: None)
  Receive Date: 20110120
  Receipt Date: 20110108
  Transmission Date: 20110831
  Serious: Yes (Other)
  Sender: FDA-Public Use
  Company Number: US-JNJFOC-20110102660

PATIENT
  Sex: Male
  Weight: 97.52 kg

DRUGS (1)
  1. STELARA [Suspect]
     Indication: PSORIASIS
     Route: 058

REACTIONS (8)
  - HAEMATOCHEZIA [None]
  - DEHYDRATION [None]
  - BLISTER [None]
  - BLOOD URINE PRESENT [None]
  - HAEMORRHAGE [None]
  - PANCREATIC CARCINOMA [None]
  - MYALGIA [None]
  - HAEMOPTYSIS [None]
